FAERS Safety Report 6711245-X (Version None)
Quarter: 2010Q2

REPORT INFORMATION
  Report Type: 
  Country: None (occurrence: None)
  Receive Date: 20100505
  Receipt Date: 20100427
  Transmission Date: 20101027
  Serious: Yes (Hospitalization, Other)
  Sender: FDA-Public Use
  Company Number: US-BAYER-201023750GPV

PATIENT
  Age: 25 Year
  Sex: Female
  Weight: 65 kg

DRUGS (5)
  1. CIPROFLOXACIN [Suspect]
     Indication: PYELONEPHRITIS
     Dosage: TOTAL DAILY DOSE: 1000 MG  UNIT DOSE: 500 MG
     Route: 048
  2. IBUPROFEN [Concomitant]
     Indication: PAIN MANAGEMENT
     Dosage: 400 MG Q6H
     Route: 048
  3. AZITHROMYCIN [Concomitant]
     Indication: PNEUMONIA
     Dosage: AS USED: 500 MG/D
     Route: 048
  4. VANCOMYCIN [Concomitant]
     Indication: PNEUMONIA
     Dosage: 1 G/D IV FOR 7 DAYS
     Route: 042
  5. FUROSEMIDE [Concomitant]
     Indication: HYDRONEPHROSIS
     Route: 042

REACTIONS (13)
  - ANAPHYLACTIC REACTION [None]
  - ANGIOEDEMA [None]
  - DYSPNOEA [None]
  - FACE OEDEMA [None]
  - HYPOXIA [None]
  - LIP OEDEMA [None]
  - LIP SWELLING [None]
  - NAUSEA [None]
  - OEDEMA PERIPHERAL [None]
  - PULMONARY OEDEMA [None]
  - RESPIRATORY DISTRESS [None]
  - SWELLING FACE [None]
  - VOMITING [None]
